FAERS Safety Report 5488998-4 (Version None)
Quarter: 2007Q4

REPORT INFORMATION
  Report Type: 
  Country: None (occurrence: None)
  Receive Date: 20071016
  Receipt Date: 20071001
  Transmission Date: 20080405
  Serious: Yes (Hospitalization, Other)
  Sender: FDA-Public Use
  Company Number: 100#08#2007-03936

PATIENT
  Age: 62 Year
  Sex: Female

DRUGS (3)
  1. AMIODARONE HCL [Suspect]
     Indication: ATRIAL FIBRILLATION
     Dosage: 300 MG (1 IN 1 D)
  2. FAMOTIDINE [Concomitant]
  3. LORAZEPAM [Concomitant]

REACTIONS (11)
  - ATRIAL FIBRILLATION [None]
  - BLOOD ALBUMIN INCREASED [None]
  - BLOOD GLUCOSE INCREASED [None]
  - BLOOD OSMOLARITY DECREASED [None]
  - BLOOD PRESSURE DIASTOLIC INCREASED [None]
  - CHEST PAIN [None]
  - HEART RATE INCREASED [None]
  - HEART RATE IRREGULAR [None]
  - HYPONATRAEMIA [None]
  - INAPPROPRIATE ANTIDIURETIC HORMONE SECRETION [None]
  - PALPITATIONS [None]
